FAERS Safety Report 11870271 (Version 1)
Quarter: 2015Q4

REPORT INFORMATION
  Report Type: Spontaneous
  Country: US (occurrence: None)
  Receive Date: 20151224
  Receipt Date: 20151224
  Transmission Date: 20160305
  Serious: Yes (Hospitalization)
  Sender: FDA-Public Use
  Company Number: None

PATIENT
  Age: 62 Year
  Sex: Male

DRUGS (13)
  1. FLUCONAZOLE. [Concomitant]
     Active Substance: FLUCONAZOLE
  2. INSULIN ASPART [Concomitant]
     Active Substance: INSULIN ASPART
  3. LOPERAMIDE [Concomitant]
     Active Substance: LOPERAMIDE
  4. CALCIUM ACETATE. [Concomitant]
     Active Substance: CALCIUM ACETATE
  5. SODIUM CHLORIDE. [Concomitant]
     Active Substance: SODIUM CHLORIDE
  6. HEPARIN [Concomitant]
     Active Substance: HEPARIN SODIUM
  7. TACROLIMUS. [Suspect]
     Active Substance: TACROLIMUS
     Indication: IMMUNOSUPPRESSION
     Dosage: EVERY 12 HOURS
     Route: 048
     Dates: start: 20150717, end: 20150807
  8. ACYCLOVIR. [Concomitant]
     Active Substance: ACYCLOVIR
  9. AZATHIOPRINE. [Concomitant]
     Active Substance: AZATHIOPRINE
  10. NYSTATIN ORAL LIQUID [Concomitant]
     Active Substance: NYSTATIN
  11. OXYCODONE [Concomitant]
     Active Substance: OXYCODONE
  12. PREDNISONE. [Concomitant]
     Active Substance: PREDNISONE
  13. RANITIDINE [Concomitant]
     Active Substance: RANITIDINE\RANITIDINE HYDROCHLORIDE

REACTIONS (8)
  - General physical health deterioration [None]
  - Hyperkalaemia [None]
  - Laboratory test abnormal [None]
  - Renal impairment [None]
  - Electrocardiogram T wave peaked [None]
  - Hyponatraemia [None]
  - Peripheral swelling [None]
  - Blood electrolytes abnormal [None]

NARRATIVE: CASE EVENT DATE: 20150810
